FAERS Safety Report 19951663 (Version 1)
Quarter: 2021Q4

REPORT INFORMATION
  Report Type: Spontaneous
  Country: US (occurrence: US)
  Receive Date: 20211014
  Receipt Date: 20211014
  Transmission Date: 20220303
  Serious: No
  Sender: FDA-Public Use
  Company Number: US-SA-SAC20211011001021

PATIENT
  Age: 59 Year
  Sex: Female

DRUGS (11)
  1. AUBAGIO [Suspect]
     Active Substance: TERIFLUNOMIDE
     Indication: Multiple sclerosis
     Dosage: 1 DF, QD
     Route: 048
     Dates: start: 2015
  2. ACTHAR [Suspect]
     Active Substance: CORTICOTROPIN
  3. LOSARTAN POTASSIUM [Concomitant]
     Active Substance: LOSARTAN POTASSIUM
  4. MYRBETRIQ [Concomitant]
     Active Substance: MIRABEGRON
  5. PROVIGIL [Concomitant]
     Active Substance: MODAFINIL
  6. VITAMIN D NOS [Concomitant]
     Active Substance: VITAMIN D NOS
  7. BIOTIN [Concomitant]
     Active Substance: BIOTIN
  8. CALCIUM CARBONATE [Concomitant]
     Active Substance: CALCIUM CARBONATE
  9. LISINOPRIL [Concomitant]
     Active Substance: LISINOPRIL
  10. VITAMIN D3 [Concomitant]
     Active Substance: CHOLECALCIFEROL
  11. VITAMINS NOS [Concomitant]
     Active Substance: VITAMINS

REACTIONS (2)
  - Hot flush [Unknown]
  - Erythema [Unknown]
